FAERS Safety Report 14920147 (Version 1)
Quarter: 2018Q2

REPORT INFORMATION
  Report Type: Spontaneous
  Country: US (occurrence: US)
  Receive Date: 20180502
  Receipt Date: 20180502
  Transmission Date: 20180711
  Serious: Yes (Disabling)
  Sender: FDA-Public Use
  Company Number: None

PATIENT
  Age: 87 Year
  Sex: Female
  Weight: 53.98 kg

DRUGS (11)
  1. VITAMIN D3 [Concomitant]
     Active Substance: CHOLECALCIFEROL
  2. LOW (81) ASPIRIN [Concomitant]
  3. AYR NASAL GEL [Suspect]
     Active Substance: SODIUM CHLORIDE
     Indication: SINUS DISORDER
     Route: 061
     Dates: start: 20180302, end: 20180305
  4. VITAMIN E [Concomitant]
     Active Substance: .ALPHA.-TOCOPHEROL
  5. LIPITOR [Concomitant]
     Active Substance: ATORVASTATIN CALCIUM
  6. LEVOTHYROXIN 88 [Concomitant]
  7. VIT. CALCIUM [Concomitant]
  8. GR. TEA [Concomitant]
  9. MUPIRACIN [Concomitant]
  10. FOSAMAX [Concomitant]
     Active Substance: ALENDRONATE SODIUM
  11. FLUTICASONE PROPIONATE. [Concomitant]
     Active Substance: FLUTICASONE PROPIONATE

REACTIONS (3)
  - Rhinitis [None]
  - Rash [None]
  - Erythema [None]

NARRATIVE: CASE EVENT DATE: 20180315
